FAERS Safety Report 21855077 (Version 1)
Quarter: 2023Q1

REPORT INFORMATION
  Report Type: Spontaneous
  Country: US (occurrence: US)
  Receive Date: 20230112
  Receipt Date: 20230112
  Transmission Date: 20230418
  Serious: No
  Sender: FDA-Public Use
  Company Number: US-PFIZER INC-202300013216

PATIENT
  Age: 79 Year
  Sex: Male
  Weight: 83.91 kg

DRUGS (3)
  1. PHENELZINE SULFATE [Suspect]
     Active Substance: PHENELZINE SULFATE
     Indication: Bipolar disorder
     Dosage: 15 MG, 3X/DAY (ONE TABLET THREE TIMES A DAY BY MOUTH)
     Route: 048
  2. PHENELZINE SULFATE [Suspect]
     Active Substance: PHENELZINE SULFATE
     Dosage: 4 TABLETS IN A DAY
     Dates: start: 202212
  3. LORAZEPAM [Concomitant]
     Active Substance: LORAZEPAM
     Indication: Anxiety
     Dosage: 1 MG, 3X/DAY (THREE TIMES A DAY BY MOUTH)
     Route: 048

REACTIONS (4)
  - Cerebral disorder [Recovering/Resolving]
  - Malaise [Recovering/Resolving]
  - Body height decreased [Unknown]
  - Off label use [Unknown]
